FAERS Safety Report 5780160-0 (Version None)
Quarter: 2008Q2

REPORT INFORMATION
  Report Type: 
  Country: None (occurrence: None)
  Receive Date: 20080620
  Receipt Date: 20080609
  Transmission Date: 20081010
  Serious: Yes (Life-Threatening, Hospitalization)
  Sender: FDA-Public Use
  Company Number: ES-BAYER-200820074GPV

PATIENT
  Age: 45 Year
  Sex: Female

DRUGS (2)
  1. ADIRO 100 MG/ ASA [Suspect]
     Indication: CARDIOVASCULAR EVENT PROPHYLAXIS
     Route: 048
     Dates: end: 20080208
  2. HUMAN INSULIN NEUTRAL MC [Concomitant]
     Indication: DIABETES MELLITUS
     Route: 058

REACTIONS (4)
  - GASTROINTESTINAL DISORDER [None]
  - HAEMANGIOMA [None]
  - OESOPHAGITIS [None]
  - UPPER GASTROINTESTINAL HAEMORRHAGE [None]
